FAERS Safety Report 4695627-6 (Version None)
Quarter: 2005Q2

REPORT INFORMATION
  Report Type: 
  Country: None (occurrence: None)
  Receive Date: 20050621
  Receipt Date: 20050608
  Transmission Date: 20051028
  Serious: Yes (Hospitalization, Other)
  Sender: FDA-Public Use
  Company Number: DE-JNJFOC-20050501750

PATIENT
  Sex: Male
  Weight: 95 kg

DRUGS (2)
  1. RISPERDAL CONSTA [Suspect]
     Route: 030
     Dates: start: 20050401, end: 20050415
  2. RISPERDAL [Suspect]
     Route: 049
     Dates: start: 20050322, end: 20050426

REACTIONS (1)
  - ELECTROCARDIOGRAM QT PROLONGED [None]
